FAERS Safety Report 18091461 (Version 1)
Quarter: 2020Q3

REPORT INFORMATION
  Report Type: Spontaneous
  Country: US (occurrence: US)
  Receive Date: 20200729
  Receipt Date: 20200729
  Transmission Date: 20201103
  Serious: Yes (Other)
  Sender: FDA-Public Use
  Company Number: None

PATIENT
  Age: 71 Year
  Sex: Female
  Weight: 56.25 kg

DRUGS (9)
  1. OLMESARTAN [Concomitant]
     Active Substance: OLMESARTAN
  2. MAGNESIUM OXIDE. [Concomitant]
     Active Substance: MAGNESIUM OXIDE
  3. IMATINIB. [Suspect]
     Active Substance: IMATINIB MESYLATE
     Indication: GASTROINTESTINAL STROMAL TUMOUR
     Route: 048
     Dates: start: 20200708
  4. XANAX [Concomitant]
     Active Substance: ALPRAZOLAM
  5. CALCIUM [Concomitant]
     Active Substance: CALCIUM
  6. RESTASIS [Concomitant]
     Active Substance: CYCLOSPORINE
  7. VITAMIN D3 [Concomitant]
     Active Substance: CHOLECALCIFEROL
  8. GAVISCON [Concomitant]
     Active Substance: ALUMINUM HYDROXIDE\MAGNESIUM CARBONATE
  9. ATENOLOL. [Concomitant]
     Active Substance: ATENOLOL

REACTIONS (4)
  - Nausea [None]
  - Hypoaesthesia [None]
  - Joint effusion [None]
  - Frequent bowel movements [None]

NARRATIVE: CASE EVENT DATE: 20200729
